FAERS Safety Report 7314986-9 (Version None)
Quarter: 2011Q1

REPORT INFORMATION
  Report Type: 
  Country: None (occurrence: None)
  Receive Date: 20110225
  Receipt Date: 20100226
  Transmission Date: 20110831
  Serious: No
  Sender: FDA-Public Use
  Company Number: US-MYLANLABS-2010S1003279

PATIENT
  Sex: Male

DRUGS (4)
  1. SOTRET [Suspect]
     Route: 048
  2. CLARAVIS [Suspect]
     Indication: ACNE CYSTIC
     Route: 048
  3. SOTRET [Suspect]
     Indication: ACNE CYSTIC
     Route: 048
  4. AMNESTEEM [Suspect]
     Indication: ACNE CYSTIC
     Route: 048
     Dates: end: 20100203

REACTIONS (3)
  - ANGER [None]
  - LIP DRY [None]
  - CHAPPED LIPS [None]
